FAERS Safety Report 20496925 (Version 1)
Quarter: 2022Q1

REPORT INFORMATION
  Report Type: Spontaneous
  Country: US (occurrence: US)
  Receive Date: 20220221
  Receipt Date: 20220221
  Transmission Date: 20220423
  Serious: No
  Sender: FDA-Public Use
  Company Number: US-INSUD PHARMA-2202US00560

PATIENT

DRUGS (3)
  1. PROGESTERONE [Suspect]
     Active Substance: PROGESTERONE
     Indication: Sleep disorder
     Dosage: 150 MG, UNKNOWN
     Route: 048
     Dates: start: 2021
  2. PROGESTERONE [Suspect]
     Active Substance: PROGESTERONE
     Dosage: 200 MG, UNKNOWN
     Route: 048
     Dates: start: 2021
  3. PROGESTERONE [Suspect]
     Active Substance: PROGESTERONE
     Dosage: 100 MG, UNKNOWN
     Route: 048

REACTIONS (6)
  - Insomnia [Not Recovered/Not Resolved]
  - Crying [Not Recovered/Not Resolved]
  - Mood altered [Not Recovered/Not Resolved]
  - Drug ineffective for unapproved indication [Not Recovered/Not Resolved]
  - Drug ineffective [Not Recovered/Not Resolved]
  - Product use in unapproved indication [Not Recovered/Not Resolved]
